FAERS Safety Report 8309931-3 (Version None)
Quarter: 2012Q2

REPORT INFORMATION
  Report Type: 
  Country: None (occurrence: None)
  Receive Date: 20120425
  Receipt Date: 20120418
  Transmission Date: 20120825
  Serious: Yes (Other)
  Sender: FDA-Public Use
  Company Number: IN-PFIZER INC-2012098134

PATIENT
  Sex: Female

DRUGS (1)
  1. SUTENT [Suspect]
     Indication: METASTATIC RENAL CELL CARCINOMA
     Dosage: 25 MG, 1X/DAY
     Route: 048
     Dates: start: 20120101

REACTIONS (5)
  - MOUTH ULCERATION [None]
  - VOMITING [None]
  - DIABETES MELLITUS [None]
  - FURUNCLE [None]
  - HAEMOGLOBIN DECREASED [None]
